FAERS Safety Report 8218792-2 (Version None)
Quarter: 2012Q1

REPORT INFORMATION
  Report Type: 
  Country: None (occurrence: None)
  Receive Date: 20120319
  Receipt Date: 20120312
  Transmission Date: 20120608
  Serious: Yes (Hospitalization)
  Sender: FDA-Public Use
  Company Number: CH-TEVA-327725ISR

PATIENT
  Age: 58 Year
  Sex: Female

DRUGS (9)
  1. ADALIMUMAB [Suspect]
     Indication: RHEUMATOID ARTHRITIS
     Dosage: 40MG EVERY 2 WEEKS
     Route: 058
  2. BIOTIN [Concomitant]
     Route: 065
  3. COLECALCIFEROL [Concomitant]
     Route: 065
  4. ALENDRONIC ACID [Concomitant]
     Route: 065
  5. CALCIUM CARBONATE [Concomitant]
     Route: 065
  6. METHOTREXATE [Suspect]
     Indication: RHEUMATOID ARTHRITIS
     Dosage: 20 MG/WEEK
     Route: 058
  7. LEVOTHYROXINE SODIUM [Concomitant]
     Route: 065
  8. CALCIUM DOBESILATE [Concomitant]
     Route: 065
  9. SIBUTRAMINE HYDROCHLORIDE MONOHYDRATE [Concomitant]
     Route: 065

REACTIONS (1)
  - MENINGITIS NONINFECTIVE [None]
